FAERS Safety Report 6730490-0 (Version None)
Quarter: 2010Q2

REPORT INFORMATION
  Report Type: 
  Country: None (occurrence: None)
  Receive Date: 20100514
  Receipt Date: 20100503
  Transmission Date: 20101027
  Serious: Yes (Hospitalization)
  Sender: FDA-Public Use
  Company Number: DSA_43085_2010

PATIENT
  Sex: Male

DRUGS (1)
  1. APLENZIN [Suspect]
     Indication: DEPRESSION
     Dosage: DF

REACTIONS (1)
  - RASH [None]
